FAERS Safety Report 4368705-9 (Version None)
Quarter: 2004Q2

REPORT INFORMATION
  Report Type: 
  Country: None (occurrence: None)
  Receive Date: 20040525
  Receipt Date: 20040512
  Transmission Date: 20050107
  Serious: Yes (Hospitalization, Other)
  Sender: FDA-Public Use
  Company Number: 2004208262JP

PATIENT
  Age: 50 Year
  Sex: Male

DRUGS (2)
  1. CAMPTOSAR [Suspect]
     Indication: GASTRIC CANCER
     Dosage: 70.6 MG/M2, IV DRIP
     Route: 041
     Dates: start: 20040327, end: 20040327
  2. CISPLATIN [Suspect]
     Indication: GASTRIC CANCER
     Dosage: 76.5 MG/M2, IV DRIP
     Route: 041
     Dates: start: 20040327

REACTIONS (8)
  - ACQUIRED PYLORIC STENOSIS [None]
  - DIARRHOEA [None]
  - HAEMOGLOBIN DECREASED [None]
  - LEUKOPENIA [None]
  - NAUSEA [None]
  - RENAL FAILURE ACUTE [None]
  - THROMBOCYTOPENIA [None]
  - VOMITING [None]
